FAERS Safety Report 4935045-6 (Version None)
Quarter: 2006Q1

REPORT INFORMATION
  Report Type: 
  Country: None (occurrence: None)
  Receive Date: 20060303
  Receipt Date: 20060303
  Transmission Date: 20060701
  Serious: Yes (Hospitalization, Other)
  Sender: FDA-Public Use
  Company Number: None

PATIENT
  Age: 44 Year
  Sex: Female
  Weight: 77.1115 kg

DRUGS (1)
  1. AVELOX [Suspect]
     Indication: LABYRINTHITIS
     Dosage: 400MG DAILY PO
     Route: 048
     Dates: start: 20060213, end: 20060217

REACTIONS (8)
  - ANXIETY [None]
  - LOSS OF EMPLOYMENT [None]
  - PAIN IN EXTREMITY [None]
  - PALPITATIONS [None]
  - PARTNER STRESS [None]
  - TACHYCARDIA [None]
  - TENDON DISORDER [None]
  - TENDONITIS [None]
